FAERS Safety Report 9543384 (Version 2)
Quarter: 2013Q4

REPORT INFORMATION
  Report Type: Spontaneous
  Country: US (occurrence: US)
  Receive Date: 20130923
  Receipt Date: 20131024
  Transmission Date: 20140711
  Serious: Yes (Other)
  Sender: FDA-Public Use
  Company Number: US-PFIZER INC-2013272704

PATIENT
  Age: 24 Year
  Sex: Male
  Weight: 59.86 kg

DRUGS (3)
  1. LYRICA [Suspect]
     Indication: NEOPLASM MALIGNANT
     Dosage: UNK, 3X/DAY
     Dates: end: 2013
  2. LYRICA [Suspect]
     Indication: CARDIOVASCULAR DISORDER
     Dosage: UNK
  3. LYRICA [Suspect]
     Indication: PAIN

REACTIONS (2)
  - Off label use [Recovered/Resolved]
  - Tooth loss [Unknown]
